FAERS Safety Report 6745679-4 (Version None)
Quarter: 2010Q2

REPORT INFORMATION
  Report Type: 
  Country: None (occurrence: None)
  Receive Date: 20100528
  Receipt Date: 20100518
  Transmission Date: 20101027
  Serious: Yes (Life-Threatening, Hospitalization)
  Sender: FDA-Public Use
  Company Number: US-JNJFOC-20100407843

PATIENT
  Sex: Female
  Weight: 104.9 kg

DRUGS (34)
  1. BLINDED; INFLIXIMAB, RECOMBINANT [Suspect]
     Indication: HEPATITIS C
     Route: 042
  2. BLINDED; INFLIXIMAB, RECOMBINANT [Suspect]
     Route: 042
  3. PLACEBO [Suspect]
     Indication: HEPATITIS C
     Route: 042
  4. PLACEBO [Suspect]
     Route: 042
  5. PEG-INTRON [Suspect]
     Indication: HEPATITIS C
     Route: 058
  6. REBETOL [Suspect]
     Indication: HEPATITIS C
     Route: 048
  7. DILAUDID [Concomitant]
  8. PROPRANOLOL [Concomitant]
     Indication: HYPERTENSION
  9. TYLENOL (CAPLET) [Concomitant]
  10. ZOLOFT [Concomitant]
     Indication: DEPRESSION
  11. LACTULOSE [Concomitant]
  12. PHENERGAN [Concomitant]
     Indication: NAUSEA
     Dosage: 1 Q 6 HOURS
     Route: 048
  13. LORTAB [Concomitant]
  14. XANAX [Concomitant]
     Dosage: EVERY 8 HOURS PRN
  15. NORTRIPTYLINE HCL [Concomitant]
     Indication: HEADACHE
  16. PROTONIX [Concomitant]
  17. HYDROCODONE [Concomitant]
     Indication: HEADACHE
     Dosage: 10/500, EVERY 8 HOURS PRN
  18. DIFLUCAN [Concomitant]
  19. NEUPOGEN [Concomitant]
  20. ZOFRAN [Concomitant]
  21. AVELOX [Concomitant]
  22. XOPENEX [Concomitant]
  23. ATROVENT [Concomitant]
  24. NEXIUM [Concomitant]
  25. HEPARIN [Concomitant]
  26. ALDACTONE [Concomitant]
     Indication: FLUID RETENTION
  27. LASIX [Concomitant]
     Indication: OEDEMA
  28. REPLIVA [Concomitant]
     Indication: ANAEMIA
     Route: 048
  29. ERYTHROMYCIN [Concomitant]
     Indication: INFECTION
  30. AUGMENTIN '125' [Concomitant]
  31. PROCRIT [Concomitant]
     Indication: ANAEMIA
  32. TESSALON [Concomitant]
  33. BACTRIM [Concomitant]
  34. CELEXA [Concomitant]

REACTIONS (5)
  - ALCOHOL ABUSE [None]
  - BACTERAEMIA [None]
  - DRUG ABUSE [None]
  - SUICIDAL IDEATION [None]
  - URINARY TRACT INFECTION [None]
